FAERS Safety Report 5383126-8 (Version None)
Quarter: 2007Q3

REPORT INFORMATION
  Report Type: 
  Country: None (occurrence: None)
  Receive Date: 20070710
  Receipt Date: 20070704
  Transmission Date: 20080115
  Serious: Yes (Hospitalization)
  Sender: FDA-Public Use
  Company Number: HQWYE107709MAY07

PATIENT
  Sex: Male
  Weight: 72 kg

DRUGS (12)
  1. MYLOTARG [Suspect]
     Indication: ACUTE MYELOID LEUKAEMIA RECURRENT
     Route: 041
     Dates: start: 20070220, end: 20070220
  2. MYLOTARG [Suspect]
     Route: 041
     Dates: start: 20070306, end: 20070306
  3. MAXIPIME [Concomitant]
     Dosage: 4 G/DAY
     Route: 041
     Dates: start: 20070319, end: 20070328
  4. TAKEPRON [Concomitant]
     Indication: PROPHYLAXIS
     Dosage: 30 MG/DAY
     Route: 048
     Dates: start: 20070220, end: 20070415
  5. MAG-LAX [Concomitant]
     Indication: CONSTIPATION
     Dosage: 750 MG/DAY
     Route: 048
     Dates: start: 20070312
  6. ALUMINIUM HYDROXIDE/MAGNESIUM HYDROXIDE [Concomitant]
     Indication: PROPHYLAXIS
     Dosage: 30 MG/DAY
     Route: 048
     Dates: start: 20070222, end: 20070415
  7. CIPROFLOXACIN [Concomitant]
     Indication: PROPHYLAXIS
     Route: 048
     Dates: start: 20070226, end: 20070318
  8. CIPROFLOXACIN [Concomitant]
     Route: 048
     Dates: start: 20070329
  9. ANTIPYRINE [Concomitant]
     Indication: NASOPHARYNGITIS
     Dosage: 3 G/DAY
     Route: 048
     Dates: start: 20070308, end: 20070316
  10. VANCOMYCIN [Concomitant]
     Dosage: 2 G/DAY
     Route: 041
     Dates: start: 20070301, end: 20070306
  11. VANCOMYCIN [Concomitant]
     Dosage: 2 G/DAY
     Route: 041
     Dates: start: 20070318, end: 20070326
  12. FLUCONAZOLE [Concomitant]
     Indication: PROPHYLAXIS
     Dosage: 100 MG/DAY
     Route: 048
     Dates: start: 20070220

REACTIONS (3)
  - CELLULITIS [None]
  - NEUTROPHIL COUNT DECREASED [None]
  - PLATELET COUNT DECREASED [None]
